FAERS Safety Report 20311210 (Version 1)
Quarter: 2022Q1

REPORT INFORMATION
  Report Type: Spontaneous
  Country: US (occurrence: US)
  Receive Date: 20220107
  Receipt Date: 20220107
  Transmission Date: 20220424
  Serious: Yes (Other)
  Sender: FDA-Public Use
  Company Number: US-SANOFI-00907496

PATIENT
  Sex: Female

DRUGS (2)
  1. DUPIXENT [Suspect]
     Active Substance: DUPILUMAB
     Indication: Dermatitis
     Dosage: 300 MG, QOW
  2. PREDNISONE [Suspect]
     Active Substance: PREDNISONE
     Dosage: UNK
     Dates: start: 2021

REACTIONS (7)
  - Cataract [Unknown]
  - Pruritus [Unknown]
  - Rash [Unknown]
  - COVID-19 [Unknown]
  - Visual impairment [Unknown]
  - Product dose omission issue [Unknown]
  - Product use in unapproved indication [Unknown]
